FAERS Safety Report 5754535-X (Version None)
Quarter: 2008Q2

REPORT INFORMATION
  Report Type: 
  Country: None (occurrence: None)
  Receive Date: 20080530
  Receipt Date: 20080521
  Transmission Date: 20081010
  Serious: Yes (Other)
  Sender: FDA-Public Use
  Company Number: JP-PFIZER INC-2008038188

PATIENT
  Age: 61 Year
  Sex: Female

DRUGS (2)
  1. XALATAN [Suspect]
     Indication: GLAUCOMA
     Route: 031
     Dates: start: 20080418, end: 20080509
  2. BLOPRESS [Concomitant]
     Route: 048

REACTIONS (3)
  - HEART RATE DECREASED [None]
  - PAIN IN EXTREMITY [None]
  - TACHYCARDIA PAROXYSMAL [None]
